FAERS Safety Report 14349930 (Version 2)
Quarter: 2018Q3

REPORT INFORMATION
  Report Type: Spontaneous
  Country: US (occurrence: US)
  Receive Date: 20180104
  Receipt Date: 20180807
  Transmission Date: 20181010
  Serious: No
  Sender: FDA-Public Use
  Company Number: US-ASTRAZENECA-2017SF16819

PATIENT
  Age: 31023 Day
  Sex: Female
  Weight: 50.8 kg

DRUGS (11)
  1. PULMICORT FLEXHALER [Suspect]
     Active Substance: BUDESONIDE
     Indication: CHRONIC OBSTRUCTIVE PULMONARY DISEASE
     Dosage: TWICE A DAY
     Route: 055
     Dates: start: 20180729
  2. AZITHROMYCIN ANHYDROUS. [Concomitant]
     Active Substance: AZITHROMYCIN ANHYDROUS
     Indication: CHRONIC OBSTRUCTIVE PULMONARY DISEASE
  3. ISOSORBIDE. [Concomitant]
     Active Substance: ISOSORBIDE
     Route: 048
  4. BEVESPI AEROSPHERE [Suspect]
     Active Substance: FORMOTEROL FUMARATE\GLYCOPYRROLATE
     Indication: CHRONIC OBSTRUCTIVE PULMONARY DISEASE
     Dosage: TWO PUFFS TWICE A DAY
     Route: 055
     Dates: start: 20171113
  5. FOLIC ACID. [Concomitant]
     Active Substance: FOLIC ACID
     Route: 048
  6. CALCIUM [Concomitant]
     Active Substance: CALCIUM
     Route: 048
  7. PREDNISONE. [Concomitant]
     Active Substance: PREDNISONE
     Route: 048
  8. ST JOSEPH ASPIRIN [Concomitant]
     Route: 048
  9. Z PACK [Concomitant]
     Active Substance: AZITHROMYCIN DIHYDRATE
     Route: 048
  10. CARDIZAM [Concomitant]
     Route: 048
  11. CARTIA (ACETYLSALICYLIC ACID) [Concomitant]
     Active Substance: ASPIRIN
     Route: 048

REACTIONS (5)
  - Intentional product misuse [Unknown]
  - Product use in unapproved indication [Unknown]
  - Palpitations [Unknown]
  - Off label use [Unknown]
  - Candida infection [Not Recovered/Not Resolved]

NARRATIVE: CASE EVENT DATE: 20171113
